FAERS Safety Report 8558402-8 (Version None)
Quarter: 2012Q3

REPORT INFORMATION
  Report Type: 
  Country: None (occurrence: None)
  Receive Date: 20120727
  Receipt Date: 20120727
  Transmission Date: 20120928
  Serious: Yes (Other)
  Sender: FDA-Public Use
  Company Number: None

PATIENT
  Sex: Male
  Weight: 72.1219 kg

DRUGS (1)
  1. TEMODAR [Suspect]
     Dosage: 1 CAPSULE DAILY FOR 5 DAYS
     Dates: start: 20120224, end: 20120227

REACTIONS (1)
  - HERPES ZOSTER [None]
